FAERS Safety Report 9320358 (Version 3)
Quarter: 2013Q3

REPORT INFORMATION
  Report Type: Spontaneous
  Country: JP (occurrence: JP)
  Receive Date: 20130530
  Receipt Date: 20130702
  Transmission Date: 20140515
  Serious: Yes (Hospitalization)
  Sender: FDA-Public Use
  Company Number: JP-B.I. PHARMACEUTICALS,INC./RIDGEFIELD-2013-BI-14044NB

PATIENT
  Age: 39 Year
  Sex: Male

DRUGS (5)
  1. TRAZENTA [Suspect]
     Dosage: 5 MG
     Route: 048
     Dates: start: 20130510, end: 20130513
  2. METHYCOOL [Suspect]
     Dosage: 1500 MG
     Route: 048
     Dates: start: 20130411, end: 20130513
  3. VOGLIBOSE [Suspect]
     Dosage: 0.6 MG
     Route: 048
     Dates: start: 20130418, end: 20130509
  4. GLIMEPIRIDE [Concomitant]
     Dosage: 0.5 MG
     Route: 048
     Dates: start: 20130423, end: 20130513
  5. JANUVIA [Concomitant]
     Dosage: 100 MG
     Route: 048
     Dates: start: 20130418, end: 20130509

REACTIONS (1)
  - Liver disorder [Unknown]
